FAERS Safety Report 16304077 (Version 1)
Quarter: 2019Q2

REPORT INFORMATION
  Report Type: Spontaneous
  Country: US (occurrence: US)
  Receive Date: 20190510
  Receipt Date: 20190510
  Transmission Date: 20190711
  Serious: Yes (Hospitalization)
  Sender: FDA-Public Use
  Company Number: None

PATIENT
  Age: 4 Month
  Sex: Male

DRUGS (2)
  1. HYLAND^S BELLADONNA 30X FEVERS + INFLAMMATIONS [Concomitant]
     Active Substance: HOMEOPATHICS
     Dates: start: 20190507, end: 20190507
  2. HYLAND^S BELLADONNA 30X FEVERS + INFLAMMATIONS [Suspect]
     Active Substance: HOMEOPATHICS
     Dates: start: 20190507, end: 20190507

REACTIONS (3)
  - Tachycardia [None]
  - Seizure [None]
  - Hyperthermia [None]

NARRATIVE: CASE EVENT DATE: 20190507
